FAERS Safety Report 17676560 (Version 3)
Quarter: 2020Q3

REPORT INFORMATION
  Report Type: Spontaneous
  Country: BE (occurrence: BE)
  Receive Date: 20200416
  Receipt Date: 20200714
  Transmission Date: 20201102
  Serious: Yes (Hospitalization)
  Sender: FDA-Public Use
  Company Number: BE-SAMSUNG BIOEPIS-SB-2020-12662

PATIENT
  Age: 41 Year
  Sex: Female
  Weight: 60 kg

DRUGS (2)
  1. IMRALDI [Suspect]
     Active Substance: ADALIMUMAB
     Indication: CROHN^S DISEASE
     Dosage: 40 MG/0.8 ML
     Route: 058
     Dates: start: 20191011, end: 20200327
  2. NICOTINELL [Concomitant]
     Active Substance: NICOTINE
     Indication: SMOKING CESSATION THERAPY
     Dosage: 7 MG/24 H, 1 PATCH, 08:00 A.M.
     Route: 062
     Dates: start: 2020

REACTIONS (1)
  - Rectal abscess [Not Recovered/Not Resolved]

NARRATIVE: CASE EVENT DATE: 20200307
